FAERS Safety Report 9296187 (Version 18)
Quarter: 2014Q3

REPORT INFORMATION
  Report Type: Spontaneous
  Country: US (occurrence: US)
  Receive Date: 20130517
  Receipt Date: 20140813
  Transmission Date: 20150326
  Serious: Yes (Death, Hospitalization)
  Sender: FDA-Public Use
  Company Number: US-GLAXOSMITHKLINE-A1023564A

PATIENT
  Age: 53 Year
  Sex: Female

DRUGS (2)
  1. FLOLAN [Suspect]
     Active Substance: EPOPROSTENOL SODIUM
     Indication: PULMONARY ARTERIAL HYPERTENSION
     Dosage: 49.3NGKM CONTINUOUS
     Route: 042
     Dates: start: 20040224, end: 20140617
  2. TRACLEER [Concomitant]
     Active Substance: BOSENTAN\BOSENTAN MONOHYDRATE

REACTIONS (15)
  - Haemorrhage [Recovered/Resolved]
  - Device malfunction [Recovered/Resolved]
  - Upper respiratory tract infection [Recovered/Resolved]
  - Cough [Unknown]
  - Device dislocation [Recovered/Resolved]
  - Device breakage [Recovered/Resolved]
  - Pneumonia [Recovering/Resolving]
  - Catheter placement [Recovered/Resolved]
  - Device leakage [Recovered/Resolved]
  - Catheter site haemorrhage [Recovered/Resolved]
  - Hospice care [Not Recovered/Not Resolved]
  - Lung neoplasm malignant [Fatal]
  - Nasopharyngitis [Unknown]
  - Dyspnoea [Unknown]
  - Device related infection [Unknown]

NARRATIVE: CASE EVENT DATE: 20130510
